FAERS Safety Report 6421473-9 (Version None)
Quarter: 2009Q4

REPORT INFORMATION
  Report Type: 
  Country: None (occurrence: None)
  Receive Date: 20091030
  Receipt Date: 20091021
  Transmission Date: 20100525
  Serious: Yes (Other)
  Sender: FDA-Public Use
  Company Number: BR-PFIZER INC-2009287187

PATIENT
  Age: 19 Year

DRUGS (1)
  1. PROVERA [Suspect]
     Indication: AMENORRHOEA
     Dosage: 10 MG, 1X/DAY
     Route: 048
     Dates: start: 20050101

REACTIONS (3)
  - ABORTION SPONTANEOUS [None]
  - INFERTILITY FEMALE [None]
  - POLYCYSTIC OVARIES [None]
